FAERS Safety Report 9460822 (Version 3)
Quarter: 2014Q1

REPORT INFORMATION
  Report Type: Spontaneous
  Country: JP (occurrence: JP)
  Receive Date: 20130815
  Receipt Date: 20140221
  Transmission Date: 20141002
  Serious: Yes (Other)
  Sender: FDA-Public Use
  Company Number: JP-AMGEN-JPNSP2013057116

PATIENT
  Age: 61 Year
  Sex: Female
  Weight: 55 kg

DRUGS (5)
  1. RANMARK [Suspect]
     Indication: METASTASES TO BONE
     Dosage: 120 MG, 17 TIMES
     Route: 058
     Dates: start: 20120516
  2. RANMARK [Suspect]
     Dosage: 17 TIMES
     Route: 058
     Dates: start: 20120516
  3. AROMASIN [Concomitant]
     Indication: BREAST CANCER
     Route: 048
     Dates: start: 20101027
  4. CELECOX [Concomitant]
     Route: 048
     Dates: start: 20101124
  5. DENOTAS [Concomitant]
     Dosage: CTB
     Route: 048
     Dates: start: 20130619, end: 20130806

REACTIONS (1)
  - Osteonecrosis of jaw [Not Recovered/Not Resolved]
